APPROVED DRUG PRODUCT: MEROPENEM
Active Ingredient: MEROPENEM
Strength: 1GM/VIAL
Dosage Form/Route: INJECTABLE;INJECTION
Application: A204854 | Product #002
Applicant: DAEWOONG PHARMACEUTICAL CO LTD
Approved: Dec 18, 2015 | RLD: No | RS: No | Type: DISCN